FAERS Safety Report 4330954-3 (Version None)
Quarter: 2004Q1

REPORT INFORMATION
  Report Type: 
  Country: None (occurrence: None)
  Receive Date: 20040329
  Receipt Date: 20040308
  Transmission Date: 20041129
  Serious: Yes (Life-Threatening, Hospitalization)
  Sender: FDA-Public Use
  Company Number: PHHO2004LB03113

PATIENT
  Age: 25 Year
  Sex: Male
  Weight: 60.3 kg

DRUGS (4)
  1. ZOLEDRONATE (ZOLEDRONATE T29581+SOLINJ) SOLUTION FOR INJECTION [Suspect]
     Indication: OSTEOPOROSIS
     Dosage: 4 MG, Q3MO, INTRAVENOUS
     Route: 042
     Dates: start: 20040210
  2. CALCIUM [Concomitant]
  3. FOLIC ACID [Concomitant]
  4. LI [Concomitant]

REACTIONS (8)
  - ARTHRALGIA [None]
  - CONCOMITANT DISEASE PROGRESSION [None]
  - DYSPNOEA [None]
  - HYPOAESTHESIA [None]
  - HYPOCALCAEMIA [None]
  - INTESTINAL OBSTRUCTION [None]
  - MUSCLE CRAMP [None]
  - PYREXIA [None]
